FAERS Safety Report 19931573 (Version 1)
Quarter: 2021Q4

REPORT INFORMATION
  Report Type: Spontaneous
  Country: US (occurrence: US)
  Receive Date: 20211008
  Receipt Date: 20211008
  Transmission Date: 20220303
  Serious: No
  Sender: FDA-Public Use
  Company Number: US-NOVARTISTESTPH-NVSC2021US230254

PATIENT
  Age: 51 Year
  Sex: Female

DRUGS (3)
  1. TREPROSTINIL [Suspect]
     Active Substance: TREPROSTINIL
     Indication: Pulmonary arterial hypertension
     Dosage: UNK, CONT
     Route: 041
     Dates: start: 201904
  2. REMODULIN [Suspect]
     Active Substance: TREPROSTINIL
     Indication: Pulmonary arterial hypertension
     Dosage: UNK, CONT
     Route: 041
     Dates: start: 20180614, end: 20190405
  3. REMODULIN [Suspect]
     Active Substance: TREPROSTINIL
     Dosage: 70 NG/KG/MIN
     Route: 041
     Dates: start: 20190606

REACTIONS (3)
  - Dyspnoea [Recovering/Resolving]
  - Insomnia [Unknown]
  - Fatigue [Recovering/Resolving]

NARRATIVE: CASE EVENT DATE: 20190601
